FAERS Safety Report 21721961 (Version 2)
Quarter: 2023Q1

REPORT INFORMATION
  Report Type: Spontaneous
  Country: US (occurrence: US)
  Receive Date: 20221213
  Receipt Date: 20230111
  Transmission Date: 20230418
  Serious: Yes (Life-Threatening, Hospitalization, Other)
  Sender: FDA-Public Use
  Company Number: US-JUBILANT CADISTA PHARMACEUTICALS-2022JUB00467

PATIENT
  Age: 32 Year
  Sex: Female

DRUGS (15)
  1. PROCHLORPERAZINE [Suspect]
     Active Substance: PROCHLORPERAZINE
     Indication: Nausea
     Dosage: 5 MG 1 TOTAL IN THE EVENING OF HD4 AT 20:04 HRS
     Route: 042
  2. PROCHLORPERAZINE [Suspect]
     Active Substance: PROCHLORPERAZINE
     Dosage: 5 MG, 1 TOTAL SECOND DOSEGIVEN ON HD 5 AT 6:15 HRS
     Route: 042
  3. QUETIAPINE [Suspect]
     Active Substance: QUETIAPINE
     Indication: Insomnia
     Dosage: 25 MG, 1X/DAY. STRATED ON HD 2 AT 21:17 HRS, STOPPED ON HD 4 AT 08:06 HRS
     Route: 065
  4. CITALOPRAM [Suspect]
     Active Substance: CITALOPRAM HYDROBROMIDE
     Indication: Major depression
     Dosage: 30 MG, 1X/DAY. STARTED ON HD 2 AT 09:32 HRS, STOPPED ON HD AT 18:56 HRS
     Route: 065
  5. CITALOPRAM [Suspect]
     Active Substance: CITALOPRAM HYDROBROMIDE
     Indication: Depression
  6. CITALOPRAM [Suspect]
     Active Substance: CITALOPRAM HYDROBROMIDE
     Indication: Anxiety disorder
  7. REMDESIVIR [Suspect]
     Active Substance: REMDESIVIR
     Indication: COVID-19
     Dosage: UNK. STARTED ON HD 1 AT 23:39 HRS, STOPPED ON HD AT 11:25 HRS
     Route: 065
  8. ONDANSETRON [Suspect]
     Active Substance: ONDANSETRON
     Indication: Nausea
     Dosage: 14 MG 1 TOTAL. STARTED ON HD 1 AT 12:41 HRS, STOPPED ON HD 2 AT 10:25 HRS
     Route: 042
  9. ONDANSETRON [Suspect]
     Active Substance: ONDANSETRON
     Dosage: 2 UNK
     Route: 042
  10. DEXAMETHASONE [Concomitant]
     Active Substance: DEXAMETHASONE
     Indication: COVID-19
     Dosage: UNK, ATARTED ON HD 1 AT 23:19 HRS
     Route: 065
  11. APIXABAN [Concomitant]
     Active Substance: APIXABAN
     Indication: Prophylaxis
     Dosage: STARTED ON HD 2 AT 09:33 HRS
     Route: 065
  12. APIXABAN [Concomitant]
     Active Substance: APIXABAN
     Indication: Pulmonary embolism
  13. APIXABAN [Concomitant]
     Active Substance: APIXABAN
     Indication: Deep vein thrombosis
  14. HYDROMORPHONE [Concomitant]
     Active Substance: HYDROMORPHONE
     Dosage: UNK, STARTED ON HD 1 AT 19:03 HRS
     Route: 065
  15. LORAZEPAM [Concomitant]
     Active Substance: LORAZEPAM
     Dosage: UNK, STARTED ON HD 1 AT 20:01 HRS
     Route: 065

REACTIONS (2)
  - Electrocardiogram QT prolonged [Recovered/Resolved]
  - Torsade de pointes [Recovered/Resolved]
